FAERS Safety Report 13896116 (Version 1)
Quarter: 2017Q3

REPORT INFORMATION
  Report Type: Spontaneous
  Country: US (occurrence: None)
  Receive Date: 20170816
  Receipt Date: 20170816
  Transmission Date: 20171127
  Serious: Yes (Life-Threatening)
  Sender: FDA-Public Use
  Company Number: None

PATIENT
  Age: 92 Year
  Sex: Male

DRUGS (1)
  1. CISATRACURIUM. [Suspect]
     Active Substance: CISATRACURIUM
     Indication: SURGERY
     Dates: start: 20170511, end: 20170511

REACTIONS (1)
  - Bradycardia [None]

NARRATIVE: CASE EVENT DATE: 20170511
